FAERS Safety Report 10305450 (Version 1)
Quarter: 2014Q3

REPORT INFORMATION
  Report Type: Spontaneous
  Country: DK (occurrence: DK)
  Receive Date: 20140715
  Receipt Date: 20140715
  Transmission Date: 20150326
  Serious: Yes (Other)
  Sender: FDA-Public Use
  Company Number: DK-MYLANLABS-2014S1015854

PATIENT
  Age: 89 Year
  Sex: Female

DRUGS (2)
  1. ALENDRONATE [Suspect]
     Active Substance: ALENDRONATE SODIUM
     Indication: OSTEOPOROSIS
     Dosage: STYRKE: 70 MG
     Route: 048
     Dates: start: 2007, end: 2013
  2. ACLASTA [Suspect]
     Active Substance: ZOLEDRONIC ACID
     Indication: OSTEOPOROSIS
     Dosage: STYRKE: 5 MG/100 ML
     Route: 042
     Dates: start: 2013

REACTIONS (2)
  - Osteonecrosis of jaw [Recovered/Resolved with Sequelae]
  - Sequestrectomy [Unknown]

NARRATIVE: CASE EVENT DATE: 20131216
